FAERS Safety Report 11976368 (Version 1)
Quarter: 2016Q1

REPORT INFORMATION
  Report Type: Spontaneous
  Country: DE (occurrence: None)
  Receive Date: 20160128
  Receipt Date: 20160128
  Transmission Date: 20160526
  Serious: Yes (Hospitalization)
  Sender: FDA-Public Use
  Company Number: None

PATIENT
  Sex: Male
  Weight: 91 kg

DRUGS (7)
  1. ASPIRIN. [Concomitant]
     Active Substance: ASPIRIN
  2. DACLATASVIR 60 MG [Suspect]
     Active Substance: DACLATASVIR
     Indication: HEPATITIS C
     Route: 048
     Dates: start: 20150320, end: 20150402
  3. ALLOPURINOL. [Concomitant]
     Active Substance: ALLOPURINOL
  4. SOFOSBUVIR 400 MG [Suspect]
     Active Substance: SOFOSBUVIR
     Indication: HEPATITIS C
     Route: 048
     Dates: start: 20150320, end: 20150402
  5. NEBIVOLOL. [Concomitant]
     Active Substance: NEBIVOLOL
  6. CANDESARTAN [Concomitant]
     Active Substance: CANDESARTAN
  7. H T [Concomitant]

REACTIONS (1)
  - Acute kidney injury [None]

NARRATIVE: CASE EVENT DATE: 20150320
